FAERS Safety Report 12677901 (Version 1)
Quarter: 2016Q3

REPORT INFORMATION
  Report Type: Spontaneous
  Country: US (occurrence: US)
  Receive Date: 20160823
  Receipt Date: 20160823
  Transmission Date: 20161109
  Serious: No
  Sender: FDA-Public Use
  Company Number: US-TARO-2016TAR00310

PATIENT
  Age: 76 Year
  Sex: Male
  Weight: 68.27 kg

DRUGS (1)
  1. WARFARIN SODIUM TABLETS USP 2.5MG [Suspect]
     Active Substance: WARFARIN SODIUM
     Indication: ATRIAL FIBRILLATION
     Dosage: 2.5 MG, 1X/DAY
     Route: 048
     Dates: start: 2006

REACTIONS (1)
  - International normalised ratio decreased [Not Recovered/Not Resolved]

NARRATIVE: CASE EVENT DATE: 201603
